FAERS Safety Report 7960010-4 (Version None)
Quarter: 2011Q4

REPORT INFORMATION
  Report Type: 
  Country: None (occurrence: None)
  Receive Date: 20111206
  Receipt Date: 20111128
  Transmission Date: 20120403
  Serious: Yes (Hospitalization, Other)
  Sender: FDA-Public Use
  Company Number: PHHY2011BR104834

PATIENT
  Sex: Male

DRUGS (1)
  1. EXFORGE [Suspect]
     Indication: HYPERTENSION
     Dosage: 1 DF(160/5 MG), A DAY

REACTIONS (3)
  - ANAESTHETIC COMPLICATION [None]
  - UPPER LIMB FRACTURE [None]
  - LARYNGEAL OEDEMA [None]
